FAERS Safety Report 21581937 (Version 1)
Quarter: 2022Q4

REPORT INFORMATION
  Report Type: Report from Study
  Country: US (occurrence: US)
  Receive Date: 20221111
  Receipt Date: 20221111
  Transmission Date: 20230113
  Serious: No
  Sender: FDA-Public Use
  Company Number: US-ABBVIE-4161306

PATIENT
  Sex: Female
  Weight: 69.853 kg

DRUGS (1)
  1. RINVOQ [Suspect]
     Active Substance: UPADACITINIB
     Indication: Crohn^s disease
     Dosage: 15 MILLIGRAM
     Route: 048
     Dates: start: 20221007

REACTIONS (3)
  - Swelling [Recovering/Resolving]
  - Pain [Not Recovered/Not Resolved]
  - Off label use [Unknown]
